FAERS Safety Report 23272150 (Version 1)
Quarter: 2023Q4

REPORT INFORMATION
  Report Type: Spontaneous
  Country: US (occurrence: None)
  Receive Date: 20231206
  Receipt Date: 20231206
  Transmission Date: 20240109
  Serious: Yes (Death)
  Sender: FDA-Public Use
  Company Number: None

PATIENT
  Age: 61 Year
  Sex: Male
  Weight: 71 kg

DRUGS (1)
  1. YESCARTA [Suspect]
     Active Substance: AXICABTAGENE CILOLEUCEL
     Indication: Diffuse large B-cell lymphoma
     Dosage: 68 ML ONCE INTRAVENOUS
     Route: 042
     Dates: start: 20231031, end: 20231031

REACTIONS (9)
  - Cytokine release syndrome [None]
  - Immune effector cell-associated neurotoxicity syndrome [None]
  - Escherichia sepsis [None]
  - Thrombocytopenia [None]
  - Unresponsive to stimuli [None]
  - Bronchoalveolar lavage abnormal [None]
  - Rhinovirus infection [None]
  - Enterovirus test positive [None]
  - Renal tubular necrosis [None]

NARRATIVE: CASE EVENT DATE: 20231031
